FAERS Safety Report 7249914-8 (Version None)
Quarter: 2011Q1

REPORT INFORMATION
  Report Type: 
  Country: None (occurrence: None)
  Receive Date: 20110128
  Receipt Date: 20100819
  Transmission Date: 20110831
  Serious: No
  Sender: FDA-Public Use
  Company Number: A0880360A

PATIENT
  Age: 62 Year
  Sex: Female

DRUGS (6)
  1. UNKNOWN MEDICATION [Concomitant]
     Indication: ARTHRITIS
  2. FISH OIL [Concomitant]
  3. ZOLOFT [Concomitant]
  4. WELLBUTRIN XL [Suspect]
     Route: 048
     Dates: start: 20100101
  5. VITAMIN B [Concomitant]
  6. COZAAR [Concomitant]

REACTIONS (1)
  - TREMOR [None]
